FAERS Safety Report 20461407 (Version 2)
Quarter: 2022Q3

REPORT INFORMATION
  Report Type: Spontaneous
  Country: US (occurrence: None)
  Receive Date: 20220211
  Receipt Date: 20220914
  Transmission Date: 20221026
  Serious: Yes (Other)
  Sender: FDA-Public Use
  Company Number: 2022A062651

PATIENT
  Age: 56 Year
  Sex: Female

DRUGS (46)
  1. NEXIUM [Suspect]
     Active Substance: ESOMEPRAZOLE MAGNESIUM
     Indication: Gastrooesophageal reflux disease
     Route: 048
     Dates: start: 2015, end: 2019
  2. NEXIUM [Suspect]
     Active Substance: ESOMEPRAZOLE MAGNESIUM
     Indication: Gastrooesophageal reflux disease
     Route: 048
     Dates: start: 2001, end: 2019
  3. NEXIUM [Suspect]
     Active Substance: ESOMEPRAZOLE MAGNESIUM
     Indication: Gastrooesophageal reflux disease
     Route: 048
     Dates: start: 20170321
  4. NEXIUM [Suspect]
     Active Substance: ESOMEPRAZOLE MAGNESIUM
     Indication: Gastrooesophageal reflux disease
     Route: 048
     Dates: start: 20151008
  5. NEXIUM 24HR [Suspect]
     Active Substance: ESOMEPRAZOLE MAGNESIUM
     Indication: Gastrooesophageal reflux disease
     Route: 048
     Dates: start: 2014, end: 2019
  6. PRILOSEC [Suspect]
     Active Substance: OMEPRAZOLE MAGNESIUM
     Indication: Gastrooesophageal reflux disease
     Route: 048
     Dates: start: 1999, end: 2019
  7. PRILOSEC [Suspect]
     Active Substance: OMEPRAZOLE MAGNESIUM
     Indication: Gastrooesophageal reflux disease
     Dosage: GENERIC
     Route: 048
     Dates: start: 2015
  8. PRILOSEC [Suspect]
     Active Substance: OMEPRAZOLE MAGNESIUM
     Indication: Gastrooesophageal reflux disease
     Dosage: GENERIC
     Route: 048
     Dates: start: 20150612
  9. PRILOSEC OTC [Suspect]
     Active Substance: OMEPRAZOLE MAGNESIUM
     Indication: Gastrooesophageal reflux disease
     Route: 048
     Dates: start: 2013
  10. DEXILANT [Suspect]
     Active Substance: DEXLANSOPRAZOLE
     Indication: Gastrooesophageal reflux disease
     Route: 065
     Dates: start: 2015, end: 2019
  11. DEXILANT [Suspect]
     Active Substance: DEXLANSOPRAZOLE
     Indication: Gastrooesophageal reflux disease
     Route: 065
     Dates: start: 20150221
  12. PREVACID [Suspect]
     Active Substance: LANSOPRAZOLE
     Indication: Gastrooesophageal reflux disease
     Route: 048
     Dates: start: 1999, end: 2019
  13. PREVACID 24 HR [Suspect]
     Active Substance: LANSOPRAZOLE
     Indication: Gastrooesophageal reflux disease
     Route: 048
     Dates: start: 1999, end: 2019
  14. AMOXICILLIN [Concomitant]
     Active Substance: AMOXICILLIN
  15. AZITHROMYCIN [Concomitant]
     Active Substance: AZITHROMYCIN
  16. DOXYCYCLINE [Concomitant]
     Active Substance: DOXYCYCLINE
  17. FLUOXETINE [Concomitant]
     Active Substance: FLUOXETINE HYDROCHLORIDE
  18. MUPIROCIN [Concomitant]
     Active Substance: MUPIROCIN
  19. TOBRAMYCIN AND DEXAMETHASONE [Concomitant]
     Active Substance: DEXAMETHASONE\TOBRAMYCIN
  20. TRIMETHOPRIM/SULFAMETHAXAZOLE [Concomitant]
  21. RANITIDINE [Concomitant]
     Active Substance: RANITIDINE
  22. DOCUSATE [Concomitant]
     Active Substance: DOCUSATE
     Dates: start: 20170321
  23. TRAZODONE [Concomitant]
     Active Substance: TRAZODONE HYDROCHLORIDE
     Dates: start: 20170321
  24. NORCO [Concomitant]
     Active Substance: ACETAMINOPHEN\HYDROCODONE BITARTRATE
     Dates: start: 20170321
  25. ZYRTEC [Concomitant]
     Active Substance: CETIRIZINE HYDROCHLORIDE
     Dates: start: 20170321
  26. VITAMINS [Concomitant]
     Active Substance: VITAMINS
     Dates: start: 20170321
  27. VITAMIN D [Concomitant]
     Active Substance: VITAMIN D NOS
     Dates: start: 20170321
  28. COMBVIENT [Concomitant]
     Dates: start: 20170321
  29. PAROXETINE [Concomitant]
     Active Substance: PAROXETINE
  30. ACETAMINOPHEN\HYDROCODONE BITARTRATE [Concomitant]
     Active Substance: ACETAMINOPHEN\HYDROCODONE BITARTRATE
  31. MONTELUKAST [Concomitant]
     Active Substance: MONTELUKAST SODIUM
  32. CETIRIZINE HYDROCHLORIDE [Concomitant]
     Active Substance: CETIRIZINE HYDROCHLORIDE
  33. DOK [Concomitant]
     Active Substance: DOCUSATE SODIUM
  34. PREDNISONE [Concomitant]
     Active Substance: PREDNISONE
  35. FLUCONAZOLE [Concomitant]
     Active Substance: FLUCONAZOLE
  36. CYCLOBENZAPAR [Concomitant]
  37. VENTOLIN HFA [Concomitant]
     Active Substance: ALBUTEROL SULFATE
  38. CEPHALEXIN [Concomitant]
     Active Substance: CEPHALEXIN
  39. TIZANIDINE [Concomitant]
     Active Substance: TIZANIDINE
  40. BENZONATATE [Concomitant]
     Active Substance: BENZONATATE
  41. DULOXETINE [Concomitant]
     Active Substance: DULOXETINE
  42. NITROGLYCERIN [Concomitant]
     Active Substance: NITROGLYCERIN
  43. MECLIZINE [Concomitant]
     Active Substance: MECLIZINE HYDROCHLORIDE
  44. GAVILYTE [Concomitant]
     Dates: start: 20170321
  45. METHYLPREDNISOLONE [Concomitant]
     Active Substance: METHYLPREDNISOLONE
     Dates: start: 20170321
  46. DILTIAZEM [Concomitant]
     Active Substance: DILTIAZEM
     Dates: start: 20170321

REACTIONS (2)
  - Acute kidney injury [Not Recovered/Not Resolved]
  - Renal failure [Unknown]

NARRATIVE: CASE EVENT DATE: 20150101
